FAERS Safety Report 7376033-2 (Version None)
Quarter: 2011Q1

REPORT INFORMATION
  Report Type: 
  Country: None (occurrence: None)
  Receive Date: 20110325
  Receipt Date: 20110321
  Transmission Date: 20110831
  Serious: Yes (Other)
  Sender: FDA-Public Use
  Company Number: GB-MERCK-1103GBR00022

PATIENT
  Age: 76 Year
  Sex: Male

DRUGS (6)
  1. TELMISARTAN [Concomitant]
     Indication: DIABETES MELLITUS
     Route: 048
  2. ESOMEPRAZOLE MAGNESIUM [Concomitant]
     Route: 065
  3. GLICLAZIDE [Concomitant]
     Indication: DIABETES MELLITUS
     Route: 065
  4. ASPIRIN [Concomitant]
     Indication: PLATELET DISORDER
     Route: 065
  5. PRAVASTATIN SODIUM [Concomitant]
     Indication: BLOOD CHOLESTEROL ABNORMAL
     Route: 048
  6. JANUVIA [Suspect]
     Indication: DIABETES MELLITUS
     Route: 048

REACTIONS (3)
  - PRURITUS [None]
  - HYPERSENSITIVITY [None]
  - RASH [None]
